FAERS Safety Report 14690609 (Version 3)
Quarter: 2018Q2

REPORT INFORMATION
  Report Type: Spontaneous
  Country: RU (occurrence: RU)
  Receive Date: 20180328
  Receipt Date: 20180410
  Transmission Date: 20180711
  Serious: Yes (Other)
  Sender: FDA-Public Use
  Company Number: RU-009507513-1803RUS010828

PATIENT
  Age: 29 Year
  Sex: Male

DRUGS (2)
  1. NASONEX [Suspect]
     Active Substance: MOMETASONE FUROATE
     Indication: RHINITIS HYPERTROPHIC
     Dosage: 2 DOSES, ONE TIME A DAY
  2. NASONEX [Suspect]
     Active Substance: MOMETASONE FUROATE
     Dosage: PRN

REACTIONS (4)
  - Intentional product misuse [Unknown]
  - Fungal pharyngitis [Unknown]
  - Dysbacteriosis [Unknown]
  - Pharyngotonsillitis [Unknown]
